FAERS Safety Report 7528367-6 (Version None)
Quarter: 2011Q2

REPORT INFORMATION
  Report Type: 
  Country: None (occurrence: None)
  Receive Date: 20110607
  Receipt Date: 20100907
  Transmission Date: 20111010
  Serious: No
  Sender: FDA-Public Use
  Company Number: US-ASTRAZENECA-2010SE42695

PATIENT
  Sex: Female

DRUGS (4)
  1. LEVOTHYROXINE SODIUM [Concomitant]
     Dosage: UNKNOWN
  2. LISINOPRIL [Concomitant]
     Dosage: UNKNOWN
  3. COLCHICINE [Concomitant]
     Dosage: UNKNOWN
  4. PRILOSEC OTC [Suspect]
     Dosage: 1 TABLET, 1 /DAY
     Route: 048
     Dates: start: 20100807, end: 20100810

REACTIONS (2)
  - ERYTHEMA [None]
  - HOT FLUSH [None]
